FAERS Safety Report 8014022-5 (Version None)
Quarter: 2011Q4

REPORT INFORMATION
  Report Type: 
  Country: None (occurrence: None)
  Receive Date: 20111229
  Receipt Date: 20111214
  Transmission Date: 20120403
  Serious: Yes (Hospitalization)
  Sender: FDA-Public Use
  Company Number: DE-ROCHE-1025717

PATIENT
  Sex: Female

DRUGS (3)
  1. ATACAND [Concomitant]
  2. METFORMIN HCL [Concomitant]
  3. RANIBIZUMAB [Suspect]
     Indication: AGE-RELATED MACULAR DEGENERATION
     Dosage: INJECTED INTO THE RIGHT EYE. LAST DOSE PRIOR TO SAE: 13/MAR/2011
     Route: 050
     Dates: start: 20110304

REACTIONS (2)
  - TRANSIENT ISCHAEMIC ATTACK [None]
  - INAPPROPRIATE SCHEDULE OF DRUG ADMINISTRATION [None]
